FAERS Safety Report 6558229-2 (Version None)
Quarter: 2010Q1

REPORT INFORMATION
  Report Type: 
  Country: None (occurrence: None)
  Receive Date: 20100126
  Receipt Date: 20100115
  Transmission Date: 20100710
  Serious: Yes (Other)
  Sender: FDA-Public Use
  Company Number: ALL1-2010-00220

PATIENT
  Age: 85 Year
  Sex: Male
  Weight: 68 kg

DRUGS (4)
  1. FOSRENOL [Suspect]
     Indication: HYPERPHOSPHATAEMIA
     Dosage: 1000MG THREE TIMES DAILY WITH MEALS, ORAL
     Route: 048
     Dates: start: 20090701, end: 20090101
  2. INSULIN LANTUS          (INSULIN GLARGINE) [Concomitant]
  3. ENALAPRIL MALEATE [Concomitant]
  4. MVI (VITAMINS NOS) [Concomitant]

REACTIONS (6)
  - BILE DUCT STENOSIS [None]
  - DECREASED APPETITE [None]
  - HEPATIC ENZYME INCREASED [None]
  - NAUSEA [None]
  - VOMITING [None]
  - WEIGHT DECREASED [None]
